FAERS Safety Report 9798516 (Version 1)
Quarter: 2014Q1

REPORT INFORMATION
  Report Type: Spontaneous
  Country: US (occurrence: US)
  Receive Date: 20140106
  Receipt Date: 20140106
  Transmission Date: 20141002
  Serious: No
  Sender: FDA-Public Use
  Company Number: US-BAYER-2014-001543

PATIENT
  Age: 55 Year
  Sex: Male
  Weight: 67.57 kg

DRUGS (4)
  1. ALEVE CAPLET [Suspect]
     Indication: PYREXIA
     Dosage: 2 DF, PRN
     Route: 048
     Dates: start: 20140102
  2. ALEVE CAPLET [Suspect]
     Indication: PYREXIA
     Dosage: UNK
     Dates: start: 20140102
  3. BAYER GENUINE ASPIRIN ORIGINAL STRENGTH [Suspect]
     Indication: ISCHAEMIC HEART DISEASE PROPHYLAXIS
     Dosage: 1 DF, UNK
     Route: 048
  4. CENTRUM [Concomitant]
     Dosage: UNK

REACTIONS (2)
  - Off label use [None]
  - Hyperhidrosis [Recovered/Resolved]
